FAERS Safety Report 16012043 (Version 1)
Quarter: 2019Q1

REPORT INFORMATION
  Report Type: Spontaneous
  Country: CH (occurrence: CH)
  Receive Date: 20190227
  Receipt Date: 20190227
  Transmission Date: 20190418
  Serious: Yes (Hospitalization)
  Sender: FDA-Public Use
  Company Number: CH-BAYER-2019-040271

PATIENT
  Age: 78 Year
  Sex: Male
  Weight: 62 kg

DRUGS (10)
  1. VOLTAREN [Suspect]
     Active Substance: DICLOFENAC SODIUM
     Dosage: 75 MG, EVERY 2 TO 3 WEEKS FOR ABOUT 5 DAYS VOLTAREN
  2. PANTOZOL [Concomitant]
     Active Substance: PANTOPRAZOLE SODIUM
     Dosage: 40 MG, OM
  3. BRILIQUE [Suspect]
     Active Substance: TICAGRELOR
     Dosage: 90 MG, BID
     Dates: end: 20180914
  4. ASPIRIN CARDIO 100 MG [Suspect]
     Active Substance: ASPIRIN
     Dosage: 100 MG, QD
  5. VASCORD [VERAPAMIL HYDROCHLORIDE] [Concomitant]
     Dosage: 5 MG, OM
     Route: 048
     Dates: end: 20180913
  6. ALLOPUR [Concomitant]
     Active Substance: ALLOPURINOL
     Dosage: 100 MG, OM
     Route: 048
     Dates: end: 20190213
  7. SORTIS [Concomitant]
     Active Substance: ATORVASTATIN
     Dosage: 40 MG, QD
     Route: 048
     Dates: end: 20180913
  8. TAMSULOSIN SPIRIG HC [Concomitant]
     Dosage: 0.4 MG, OM
     Route: 048
  9. VITAMIN B12 AMINO [Concomitant]
     Dosage: 1000 ?G, QOD
     Route: 030
  10. PLAVIX [Concomitant]
     Active Substance: CLOPIDOGREL BISULFATE
     Dosage: 75 MG, QD
     Dates: start: 201806, end: 20180913

REACTIONS (4)
  - Fatigue [Unknown]
  - Acute kidney injury [Unknown]
  - Decreased appetite [Unknown]
  - Weight decreased [Unknown]
